FAERS Safety Report 24186549 (Version 2)
Quarter: 2024Q3

REPORT INFORMATION
  Report Type: Spontaneous
  Country: US (occurrence: US)
  Receive Date: 20240808
  Receipt Date: 20240814
  Transmission Date: 20241017
  Serious: Yes (Death, Other)
  Sender: SANOFI AVENTIS
  Company Number: US-SA-SAC20230919000583

PATIENT
  Age: 74 Year
  Sex: Male

DRUGS (4)
  1. DUPIXENT [Suspect]
     Active Substance: DUPILUMAB
     Indication: Dermatitis atopic
     Dosage: UNK, 1X
     Route: 058
     Dates: start: 20210623, end: 20210623
  2. DUPIXENT [Suspect]
     Active Substance: DUPILUMAB
     Dosage: 300 MG, QOW
     Route: 058
     Dates: start: 202107, end: 202308
  3. GENTAMICIN [Concomitant]
     Active Substance: GENTAMICIN
     Indication: Dermatitis atopic
     Dosage: UNK
  4. HYDROCORTISONE [Concomitant]
     Active Substance: HYDROCORTISONE\HYDROCORTISONE ACETATE
     Indication: Dermatitis atopic
     Dosage: UNK

REACTIONS (2)
  - Death [Fatal]
  - Eye infection [Unknown]

NARRATIVE: CASE EVENT DATE: 20230101
